FAERS Safety Report 4423219-2 (Version None)
Quarter: 2004Q3

REPORT INFORMATION
  Report Type: 
  Country: None (occurrence: None)
  Receive Date: 20040805
  Receipt Date: 20040723
  Transmission Date: 20050211
  Serious: Yes (Death)
  Sender: FDA-Public Use
  Company Number: US-JNJFOC-20040706476

PATIENT
  Age: 75 Year
  Sex: Female

DRUGS (12)
  1. INFLIXIMAB (INFLIXIMAB, RECOMBINANT) LYOPHILIZED POWDER [Suspect]
     Indication: RHEUMATOID ARTHRITIS
     Dosage: INTRAVENOUS
     Route: 042
     Dates: start: 20010117
  2. FUROSEMIDE [Concomitant]
  3. NITRO (PATC) GLYCERYL TRINITRATE [Concomitant]
  4. NITROQUICK (GLYCERYL TRINITRATE) [Concomitant]
  5. PROPOX (DEXTROPROPOXYPHENE) [Concomitant]
  6. METOPROLOL (METOPROLOL) [Concomitant]
  7. KLOR-CON [Concomitant]
  8. PRILOSEC [Concomitant]
  9. FOSAMAX [Concomitant]
  10. ASPIRIN (ACTYLSALICYLIC ACID) [Concomitant]
  11. COMBIVENT [Concomitant]
  12. CALCIUM (CALCIUM) [Concomitant]

REACTIONS (3)
  - HEPATIC CIRRHOSIS [None]
  - HEPATITIS C [None]
  - LUNG NEOPLASM MALIGNANT [None]
